FAERS Safety Report 21745443 (Version 1)
Quarter: 2022Q4

REPORT INFORMATION
  Report Type: Spontaneous
  Country: AU (occurrence: None)
  Receive Date: 20221219
  Receipt Date: 20221219
  Transmission Date: 20230112
  Serious: Yes (Hospitalization, Other)
  Sender: FDA-Public Use
  Company Number: AU-MLMSERVICE-20221207-3967496-1

PATIENT
  Age: 72 Year
  Sex: Female

DRUGS (7)
  1. METHOTREXATE [Suspect]
     Active Substance: METHOTREXATE
     Indication: Osteoarthritis
     Route: 065
  2. HYDROXYCHLOROQUINE [Suspect]
     Active Substance: HYDROXYCHLOROQUINE
     Indication: Osteoarthritis
     Route: 065
  3. TRIMETHOPRIM [Suspect]
     Active Substance: TRIMETHOPRIM
     Indication: Urinary tract infection
     Dosage: NOCTE
     Route: 065
  4. PREDNISOLONE [Suspect]
     Active Substance: PREDNISOLONE
     Indication: Osteoarthritis
     Route: 065
  5. ATORVASTATIN [Concomitant]
     Active Substance: ATORVASTATIN
     Indication: Cerebrovascular accident
     Route: 065
  6. ASPIRIN [Concomitant]
     Active Substance: ASPIRIN
     Indication: Cerebrovascular accident
     Route: 065
  7. FOLIC ACID [Concomitant]
     Active Substance: FOLIC ACID
     Indication: Osteoarthritis
     Dosage: EXCLUDING THE DAY THE PATIENT WAS TAKING METHOTREXATE.
     Route: 065

REACTIONS (12)
  - Diverticulitis [Recovered/Resolved]
  - Acute kidney injury [Recovered/Resolved]
  - Myelosuppression [Recovered/Resolved]
  - Skin ulcer [Recovered/Resolved]
  - Mucosal inflammation [Recovered/Resolved]
  - Herpes simplex viraemia [Recovered/Resolved]
  - Throat lesion [Recovered/Resolved]
  - Rash [Recovered/Resolved]
  - Toxicity to various agents [Recovered/Resolved]
  - Abdominal mass [Recovered/Resolved]
  - Pancytopenia [Recovered/Resolved]
  - Product use in unapproved indication [Unknown]
